FAERS Safety Report 21812643 (Version 1)
Quarter: 2022Q4

REPORT INFORMATION
  Report Type: Spontaneous
  Country: US (occurrence: None)
  Receive Date: 20221230
  Receipt Date: 20221230
  Transmission Date: 20230112
  Serious: Yes (Hospitalization)
  Sender: FDA-Public Use
  Company Number: None

PATIENT
  Age: 85 Year
  Sex: Female
  Weight: 59.28 kg

DRUGS (25)
  1. LENALIDOMIDE [Suspect]
     Active Substance: LENALIDOMIDE
     Indication: Plasma cell myeloma
     Dosage: OTHER FREQUENCY : 3W, 1W OFF;?
     Route: 048
  2. XGEVA [Suspect]
     Active Substance: DENOSUMAB
     Dosage: OTHER FREQUENCY : Q 4 WEEKS;?
     Route: 058
  3. ALLOPURINOL [Concomitant]
     Active Substance: ALLOPURINOL
  4. ARANESP [Concomitant]
     Active Substance: DARBEPOETIN ALFA
  5. BISOPROLOL FUMARATE [Concomitant]
     Active Substance: BISOPROLOL FUMARATE
  6. CARTIA XT [Concomitant]
  7. CLARITIN [Concomitant]
     Active Substance: LORATADINE
  8. COLACE [Concomitant]
     Active Substance: DOCUSATE SODIUM
  9. DEXAMETHASONE [Concomitant]
     Active Substance: DEXAMETHASONE
  10. FUROSEMIDE [Concomitant]
     Active Substance: FUROSEMIDE
  11. LEVOTHYROXINE [Concomitant]
     Active Substance: LEVOTHYROXINE
  12. LOSARTAN POTASSIUM [Concomitant]
     Active Substance: LOSARTAN POTASSIUM
  13. LUTEIN [Concomitant]
     Active Substance: LUTEIN
  14. MAGNESIUM [Concomitant]
     Active Substance: MAGNESIUM
  15. MELOXICAM [Concomitant]
     Active Substance: MELOXICAM
  16. Metamucil Smooth [Concomitant]
  17. Multiple Vitamin [Concomitant]
  18. PANTOPRAZOLE SODIUM [Concomitant]
  19. PRAMIPEXOLE [Concomitant]
     Active Substance: PRAMIPEXOLE
  20. PRAVASTATIN [Concomitant]
     Active Substance: PRAVASTATIN
  21. SERTRALINE [Concomitant]
     Active Substance: SERTRALINE HYDROCHLORIDE
  22. TRAMADOL [Concomitant]
     Active Substance: TRAMADOL
  23. raZODone [Concomitant]
  24. VITAMIN D3 [Concomitant]
  25. WARFARIN SODIUM [Concomitant]
     Active Substance: WARFARIN SODIUM

REACTIONS (4)
  - Pneumonia [None]
  - Intervertebral disc compression [None]
  - Pain [None]
  - Pleural effusion [None]
